FAERS Safety Report 6554592-7 (Version None)
Quarter: 2010Q1

REPORT INFORMATION
  Report Type: 
  Country: None (occurrence: None)
  Receive Date: 20100127
  Receipt Date: 20100119
  Transmission Date: 20100710
  Serious: Yes (Other)
  Sender: FDA-Public Use
  Company Number: GB-WYE-G05393510

PATIENT
  Age: 36 Year
  Sex: Female

DRUGS (1)
  1. EFFEXOR [Suspect]
     Dosage: UNKNOWN
     Dates: start: 20050101

REACTIONS (11)
  - AGITATION [None]
  - DRUG DEPENDENCE [None]
  - EUPHORIC MOOD [None]
  - FATIGUE [None]
  - FEELING JITTERY [None]
  - GASTRIC DISORDER [None]
  - MOOD SWINGS [None]
  - NERVOUSNESS [None]
  - PALLOR [None]
  - PERSONALITY CHANGE [None]
  - WEIGHT DECREASED [None]
